FAERS Safety Report 14128163 (Version 1)
Quarter: 2017Q4

REPORT INFORMATION
  Report Type: Spontaneous
  Country: US (occurrence: US)
  Receive Date: 20171026
  Receipt Date: 20171026
  Transmission Date: 20180321
  Serious: No
  Sender: FDA-Public Use
  Company Number: US-FRESENIUS MEDICAL CARE RENAL THERAPIES GROUP-FMC-1710-001208

PATIENT
  Age: 52 Year
  Sex: Male

DRUGS (18)
  1. ERGOCALCIFEROL. [Concomitant]
     Active Substance: ERGOCALCIFEROL
  2. LISINOPRIL. [Concomitant]
     Active Substance: LISINOPRIL
  3. PRAZOSIN. [Concomitant]
     Active Substance: PRAZOSIN
  4. HYDRALAZINE [Concomitant]
     Active Substance: HYDRALAZINE HYDROCHLORIDE
  5. HYDROCODONE [Concomitant]
     Active Substance: HYDROCODONE
  6. CARBIDOPA LEVODOPA [Concomitant]
     Active Substance: CARBIDOPA\LEVODOPA
  7. CLONIDINE. [Concomitant]
     Active Substance: CLONIDINE
  8. HYDROMORPHONE [Concomitant]
     Active Substance: HYDROMORPHONE
  9. MONTELUKAST [Concomitant]
     Active Substance: MONTELUKAST SODIUM
  10. DELFLEX [Suspect]
     Active Substance: CALCIUM CHLORIDE\DEXTROSE\MAGNESIUM CHLORIDE\SODIUM CHLORIDE\SODIUM LACTATE
     Indication: END STAGE RENAL DISEASE
     Dosage: 2500ML/EACH CYCLE X 6 FILLS, FOR A TOTAL DAILY VOLUME OF 15,000 ML
     Route: 033
     Dates: start: 201704
  11. AMLODIPINE [Concomitant]
     Active Substance: AMLODIPINE BESYLATE
  12. FUROSEMIDE. [Concomitant]
     Active Substance: FUROSEMIDE
  13. METOPROLOL. [Concomitant]
     Active Substance: METOPROLOL
  14. RENVELA [Concomitant]
     Active Substance: SEVELAMER CARBONATE
  15. SPIRONOLACTONE. [Concomitant]
     Active Substance: SPIRONOLACTONE
  16. DOXAZOSIN [Concomitant]
     Active Substance: DOXAZOSIN\DOXAZOSIN MESYLATE
  17. ISOSORBIDE. [Concomitant]
     Active Substance: ISOSORBIDE
  18. THIAMINE HYDROCHLORIDE. [Concomitant]
     Active Substance: THIAMINE HYDROCHLORIDE

REACTIONS (3)
  - Medication error [Recovered/Resolved]
  - Abdominal distension [Recovered/Resolved]
  - Dyspnoea [Recovered/Resolved]

NARRATIVE: CASE EVENT DATE: 20171006
